FAERS Safety Report 4877708-7 (Version None)
Quarter: 2006Q1

REPORT INFORMATION
  Report Type: 
  Country: None (occurrence: None)
  Receive Date: 20060109
  Receipt Date: 20051228
  Transmission Date: 20060701
  Serious: Yes (Other)
  Sender: FDA-Public Use
  Company Number: 2005173330

PATIENT
  Sex: Female

DRUGS (1)
  1. BENADRYL ALLERGY/SINUS (DIPHENHYDRAMINE, PSEUDOEPHEDRINE) [Suspect]
     Dosage: 27 TABS ONCE, ORAL
     Route: 048

REACTIONS (1)
  - HYPERTENSION [None]
